FAERS Safety Report 19400218 (Version 1)
Quarter: 2021Q2

REPORT INFORMATION
  Report Type: Spontaneous
  Country: US (occurrence: US)
  Receive Date: 20210610
  Receipt Date: 20210610
  Transmission Date: 20210717
  Serious: Yes (Hospitalization, Other)
  Sender: FDA-Public Use
  Company Number: US-HRARD-2021000458

PATIENT
  Age: 27 Year
  Sex: Female

DRUGS (1)
  1. MITOTANE [Suspect]
     Active Substance: MITOTANE
     Route: 048

REACTIONS (3)
  - Off label use [Recovered/Resolved]
  - Liver injury [Unknown]
  - Acute hepatic failure [Unknown]
